FAERS Safety Report 5096509-0 (Version None)
Quarter: 2006Q3

REPORT INFORMATION
  Report Type: 
  Country: None (occurrence: None)
  Receive Date: 20060830
  Receipt Date: 20060825
  Transmission Date: 20061208
  Serious: Yes (Other)
  Sender: FDA-Public Use
  Company Number: USA-2006-0024678

PATIENT
  Age: 12 Year
  Sex: Female

DRUGS (5)
  1. CEFDITOREN PIVOXIL (SIMILAR TO NDA 21-222)(CEFDITOREN PIVOXIL) UNKNOWN [Suspect]
     Indication: CHALAZION
     Dosage: 100 MG, DAILY; ORAL
     Route: 048
     Dates: start: 20060715, end: 20060715
  2. SELBEX (TEPRENONE) [Concomitant]
  3. LEVOFLOXACIN [Concomitant]
  4. FLOMOX (CEFCAPENE PIVOXIL HYDROCHLORIDE) [Concomitant]
  5. PRORANON [Concomitant]

REACTIONS (4)
  - ANAPHYLACTIC REACTION [None]
  - AUTONOMIC NERVOUS SYSTEM IMBALANCE [None]
  - EXCESSIVE EXERCISE [None]
  - SYNCOPE [None]
